FAERS Safety Report 9663326 (Version 2)
Quarter: 2013Q4

REPORT INFORMATION
  Report Type: Spontaneous
  Country: ZA (occurrence: ZA)
  Receive Date: 20131101
  Receipt Date: 20131113
  Transmission Date: 20140711
  Serious: Yes (Death, Life-Threatening, Hospitalization, Disabling, Other)
  Sender: FDA-Public Use
  Company Number: ZA-MERCK-1310ZAF014489

PATIENT
  Sex: Female

DRUGS (2)
  1. CANCIDAS 50MG [Suspect]
     Indication: FUNGAL INFECTION
  2. METFORM [Concomitant]
     Dosage: UNK, QW

REACTIONS (8)
  - Septic shock [Fatal]
  - Diabetes mellitus [Fatal]
  - Cardiac failure [Fatal]
  - Renal failure [Fatal]
  - Hyperlipidaemia [Fatal]
  - Myocardial ischaemia [Fatal]
  - Pyrexia [Fatal]
  - Drug resistance [Unknown]
